FAERS Safety Report 8627456 (Version 2)
Quarter: 2012Q4

REPORT INFORMATION
  Report Type: Report from Study
  Country: FR (occurrence: FR)
  Receive Date: 20120621
  Receipt Date: 20121116
  Transmission Date: 20130627
  Serious: Yes (Life-Threatening, Hospitalization)
  Sender: FDA-Public Use
  Company Number: FR-MILLENNIUM PHARMACEUTICALS, INC.-2012-04377

PATIENT

DRUGS (9)
  1. VELCADE [Suspect]
     Indication: MULTIPLE MYELOMA
     Dosage: 2.6 mg, UNK
     Dates: start: 20120426, end: 20120615
  2. REVLIMID [Suspect]
     Indication: MULTIPLE MYELOMA
     Dosage: 25 mg, UNK
     Route: 065
     Dates: start: 20120426, end: 20120616
  3. DEXAMETHASONE [Suspect]
     Indication: MULTIPLE MYELOMA
     Dosage: 20 mg, UNK
     Route: 065
     Dates: start: 20120426, end: 20120616
  4. INNOHEP                            /00889602/ [Concomitant]
     Indication: THROMBOSIS PROPHYLAXIS
     Dosage: 4500 IU, UNK
     Route: 058
     Dates: start: 20120427
  5. BACTRIM [Concomitant]
     Indication: ANTIBIOTIC PROPHYLAXIS
     Dosage: 800 mg, UNK
     Route: 048
     Dates: start: 20120426
  6. ZELITREX                           /01269701/ [Concomitant]
     Indication: ANTIVIRAL PROPHYLAXIS
     Dosage: 500 mg, UNK
     Route: 048
     Dates: start: 20120426
  7. ORACILLINE                         /00001801/ [Concomitant]
     Indication: ANTIBIOTIC PROPHYLAXIS
     Dosage: 1000000 IU, UNK
     Route: 048
     Dates: start: 20120426
  8. OXYNORM [Concomitant]
     Indication: BONE PAIN
     Dosage: 5 mg, UNK
     Route: 048
     Dates: start: 20120423
  9. OXYCONTIN [Concomitant]
     Indication: BONE PAIN
     Dosage: 20 mg, UNK
     Dates: start: 20120423

REACTIONS (3)
  - Acute pulmonary oedema [Recovered/Resolved with Sequelae]
  - Cardiogenic shock [Unknown]
  - Acute coronary syndrome [Unknown]
